FAERS Safety Report 20746624 (Version 1)
Quarter: 2022Q2

REPORT INFORMATION
  Report Type: Spontaneous
  Country: US (occurrence: None)
  Receive Date: 20220425
  Receipt Date: 20220425
  Transmission Date: 20220721
  Serious: Yes (Other)
  Sender: FDA-Public Use
  Company Number: None

PATIENT
  Age: 31 Year
  Sex: Female
  Weight: 91.6 kg

DRUGS (1)
  1. VENOFER [Suspect]
     Active Substance: IRON SUCROSE
     Indication: Iron deficiency anaemia
     Dosage: OTHER FREQUENCY : ONCE;?OTHER ROUTE : IVPB;?
     Route: 050
     Dates: start: 20220407

REACTIONS (7)
  - Chest discomfort [None]
  - Dizziness [None]
  - Dyspnoea [None]
  - Erythema [None]
  - Pruritus [None]
  - Urticaria [None]
  - Scratch [None]

NARRATIVE: CASE EVENT DATE: 20220421
